FAERS Safety Report 6037676-1 (Version None)
Quarter: 2009Q1

REPORT INFORMATION
  Report Type: 
  Country: None (occurrence: None)
  Receive Date: 20090114
  Receipt Date: 20081230
  Transmission Date: 20090719
  Serious: Yes (Other)
  Sender: FDA-Public Use
  Company Number: US-PFIZER INC-2009151294

PATIENT
  Sex: Female

DRUGS (1)
  1. CHANTIX [Suspect]

REACTIONS (12)
  - ANXIETY [None]
  - CONFUSIONAL STATE [None]
  - DRUG INEFFECTIVE [None]
  - FEELING ABNORMAL [None]
  - INSOMNIA [None]
  - MUSCLE SPASMS [None]
  - NAUSEA [None]
  - RESPIRATORY DISTRESS [None]
  - SOMNOLENCE [None]
  - STRESS [None]
  - THIRST [None]
  - WEIGHT INCREASED [None]
